FAERS Safety Report 4876232-5 (Version None)
Quarter: 2005Q4

REPORT INFORMATION
  Report Type: 
  Country: None (occurrence: None)
  Receive Date: 20051205
  Receipt Date: 20050921
  Transmission Date: 20060501
  Serious: No
  Sender: FDA-Public Use
  Company Number: USA0508104308

PATIENT
  Age: 55 Year
  Sex: Female

DRUGS (8)
  1. ALIMTA [Suspect]
     Indication: NON-SMALL CELL LUNG CANCER
     Dates: start: 20050601
  2. GEMZAR [Suspect]
     Indication: NON-SMALL CELL LUNG CANCER
  3. VITAMIN B-12 [Concomitant]
  4. FOLIC ACID [Concomitant]
  5. DEXAMETHASONE TAB [Concomitant]
  6. WELLBUTRIN [Concomitant]
  7. ANZEMET [Concomitant]
  8. PROZAC [Concomitant]

REACTIONS (3)
  - EYE DISORDER [None]
  - NAUSEA [None]
  - RASH [None]
